FAERS Safety Report 4520357-0 (Version None)
Quarter: 2004Q4

REPORT INFORMATION
  Report Type: 
  Country: None (occurrence: None)
  Receive Date: 20041028
  Receipt Date: 20040224
  Transmission Date: 20050328
  Serious: Yes (Other)
  Sender: FDA-Public Use
  Company Number: HQWYE308625FEB04

PATIENT
  Age: 59 Year
  Sex: Female
  Weight: 86.26 kg

DRUGS (4)
  1. PREMARIN [Suspect]
     Indication: OESTROGEN REPLACEMENT THERAPY
     Dosage: 0.625 MG/DAILY, ORAL
     Route: 048
     Dates: start: 19880101, end: 20031101
  2. VIOXX [Concomitant]
  3. BEXTRA [Concomitant]
  4. SYNTHROID [Concomitant]

REACTIONS (1)
  - THROMBOSIS [None]
